FAERS Safety Report 21943312 (Version 1)
Quarter: 2023Q1

REPORT INFORMATION
  Report Type: Other
  Country: US (occurrence: None)
  Receive Date: 20230202
  Receipt Date: 20230202
  Transmission Date: 20230418
  Serious: No
  Sender: FDA-Public Use
  Company Number: US-ROCHE-3276451

PATIENT
  Sex: Female

DRUGS (1)
  1. OCREVUS [Suspect]
     Active Substance: OCRELIZUMAB
     Indication: Relapsing multiple sclerosis
     Dosage: 27/APRIL/2021 THE PATIENT RECEIVED LAST DOSE OF TREATMENT.?DATE OF MOST RECENT INFUSION:
     Route: 042

REACTIONS (1)
  - COVID-19 [Unknown]
